FAERS Safety Report 8560181-5 (Version None)
Quarter: 2012Q3

REPORT INFORMATION
  Report Type: 
  Country: None (occurrence: None)
  Receive Date: 20120802
  Receipt Date: 20120720
  Transmission Date: 20120928
  Serious: No
  Sender: FDA-Public Use
  Company Number: US-ASTRAZENECA-2012SE51570

PATIENT
  Age: 71 Year
  Sex: Female

DRUGS (2)
  1. NEXIUM [Suspect]
     Route: 048
     Dates: start: 20030101
  2. UNSPECIFIED OTHER MEDICATIONS [Suspect]
     Route: 065

REACTIONS (6)
  - DRUG INEFFECTIVE [None]
  - NAUSEA [None]
  - ABDOMINAL DISCOMFORT [None]
  - DRUG DOSE OMISSION [None]
  - DECREASED APPETITE [None]
  - ADVERSE EVENT [None]
